FAERS Safety Report 18007084 (Version 1)
Quarter: 2020Q3

REPORT INFORMATION
  Report Type: Spontaneous
  Country: CN (occurrence: CN)
  Receive Date: 20200710
  Receipt Date: 20200710
  Transmission Date: 20201103
  Serious: Yes (Hospitalization, Other)
  Sender: FDA-Public Use
  Company Number: CN-009507513-2007CHN001536

PATIENT
  Age: 51 Year
  Sex: Male

DRUGS (4)
  1. TEMOZOLOMIDE. [Suspect]
     Active Substance: TEMOZOLOMIDE
     Dosage: 200 MG AND 300 MG ARE USED ALTERNATELY FOR A TOTAL OF 5 DAYS FOR 5 CYCLES
     Dates: start: 20191023, end: 20200116
  2. TEMOZOLOMIDE. [Suspect]
     Active Substance: TEMOZOLOMIDE
     Dosage: 200 MG AND 300 MG WERE USED ALTERNATELY FOR 7 DAYS AND STOPPED FOR 7 DAYS. USE IT ALTERNATELY FOR 7
     Dates: start: 20200305, end: 20200401
  3. TEMOZOLOMIDE. [Suspect]
     Active Substance: TEMOZOLOMIDE
     Dosage: 100 AND 200 MG ALTERNATELY EVERY OTHER DAY
     Route: 048
     Dates: start: 20190611, end: 20190719
  4. TEMOZOLOMIDE. [Suspect]
     Active Substance: TEMOZOLOMIDE
     Dosage: 100MG, PO
     Route: 048
     Dates: start: 20190408, end: 20190410

REACTIONS (9)
  - Back pain [Unknown]
  - Vomiting [Unknown]
  - Thoracic vertebral fracture [Unknown]
  - Seizure [Unknown]
  - Dizziness [Unknown]
  - Glioma [Unknown]
  - Bone marrow oedema [Unknown]
  - Muscular weakness [Unknown]
  - Nausea [Unknown]

NARRATIVE: CASE EVENT DATE: 20190408
